FAERS Safety Report 24211815 (Version 12)
Quarter: 2025Q3

REPORT INFORMATION
  Report Type: Report from Study
  Country: US (occurrence: US)
  Receive Date: 20240814
  Receipt Date: 20250808
  Transmission Date: 20251021
  Serious: Yes (Hospitalization, Other)
  Sender: TAKEDA
  Company Number: US-TAKEDA-2023TUS067775

PATIENT
  Age: 40 Year
  Sex: Female
  Weight: 99 kg

DRUGS (33)
  1. HUMAN IMMUNOGLOBULIN G [Suspect]
     Active Substance: HUMAN IMMUNOGLOBULIN G
     Indication: Immune system disorder
     Dosage: 28 GRAM, Q2WEEKS
  2. HUMAN IMMUNOGLOBULIN G [Suspect]
     Active Substance: HUMAN IMMUNOGLOBULIN G
     Indication: Hypergammaglobulinaemia
  3. HUMAN IMMUNOGLOBULIN G [Suspect]
     Active Substance: HUMAN IMMUNOGLOBULIN G
     Dosage: 30 GRAM, Q2WEEKS
  4. HUMAN IMMUNOGLOBULIN G [Suspect]
     Active Substance: HUMAN IMMUNOGLOBULIN G
     Dosage: 32 GRAM, Q2WEEKS
  5. BENADRYL [Suspect]
     Active Substance: DIPHENHYDRAMINE HYDROCHLORIDE
     Indication: Product used for unknown indication
  6. CETIRIZINE [Suspect]
     Active Substance: CETIRIZINE HYDROCHLORIDE
     Indication: Product used for unknown indication
  7. FORMALDEHYDE [Suspect]
     Active Substance: FORMALDEHYDE
     Indication: Product used for unknown indication
  8. ACETAMINOPHEN [Concomitant]
     Active Substance: ACETAMINOPHEN
  9. EPINEPHRINE [Concomitant]
     Active Substance: EPINEPHRINE
  10. DOCUSATE SODIUM [Concomitant]
     Active Substance: DOCUSATE SODIUM
  11. FISH OIL [Concomitant]
     Active Substance: FISH OIL
  12. VALTREX [Concomitant]
     Active Substance: VALACYCLOVIR HYDROCHLORIDE
  13. DICLOFENAC SODIUM [Concomitant]
     Active Substance: DICLOFENAC SODIUM
  14. BACLOFEN [Concomitant]
     Active Substance: BACLOFEN
  15. ALEVE [Concomitant]
     Active Substance: NAPROXEN SODIUM
  16. CLINDAMYCIN HYDROCHLORIDE [Concomitant]
     Active Substance: CLINDAMYCIN HYDROCHLORIDE
  17. VITAMIN E [Concomitant]
     Active Substance: .ALPHA.-TOCOPHEROL
  18. ROSUVASTATIN CALCIUM [Concomitant]
     Active Substance: ROSUVASTATIN CALCIUM
  19. TYLENOL ARTHRITIS PAIN [Concomitant]
     Active Substance: ACETAMINOPHEN
  20. PREVACID [Concomitant]
     Active Substance: LANSOPRAZOLE
  21. LISINOPRIL [Concomitant]
     Active Substance: LISINOPRIL
  22. FLUTICASONE PROPIONATE [Concomitant]
     Active Substance: FLUTICASONE PROPIONATE
  23. MONTELUKAST SODIUM [Concomitant]
     Active Substance: MONTELUKAST SODIUM
  24. DIPHENHYDRAMINE [Concomitant]
     Active Substance: DIPHENHYDRAMINE
  25. AZITHROMYCIN [Concomitant]
     Active Substance: AZITHROMYCIN
  26. LORATADINE [Concomitant]
     Active Substance: LORATADINE
  27. NAPROXEN [Concomitant]
     Active Substance: NAPROXEN
  28. DULOXETINE HYDROCHLORIDE [Concomitant]
     Active Substance: DULOXETINE HYDROCHLORIDE
  29. VITAMIN D3 [Concomitant]
     Active Substance: CHOLECALCIFEROL
  30. CETIRIZINE HCL [Concomitant]
     Active Substance: CETIRIZINE HYDROCHLORIDE
  31. Lmx [Concomitant]
  32. DIPHENHYDRAMINE HYDROCHLORIDE [Concomitant]
     Active Substance: DIPHENHYDRAMINE HYDROCHLORIDE
  33. MONTELUKAST [Concomitant]
     Active Substance: MONTELUKAST

REACTIONS (27)
  - Seizure [Unknown]
  - Ear infection [Unknown]
  - Streptococcal infection [Unknown]
  - Ovarian cyst [Unknown]
  - Infusion site discharge [Unknown]
  - Viral infection [Unknown]
  - Drug interaction [Unknown]
  - Respiratory syncytial virus infection [Unknown]
  - Gastric infection [Unknown]
  - Product dose omission issue [Unknown]
  - Drug hypersensitivity [Unknown]
  - Allergy to chemicals [Unknown]
  - Psoriasis [Unknown]
  - Needle issue [Unknown]
  - Sinusitis [Recovered/Resolved]
  - Infusion site mass [Recovering/Resolving]
  - Infusion site haemorrhage [Unknown]
  - Palpitations [Unknown]
  - Influenza [Unknown]
  - Somnolence [Unknown]
  - Infusion site bruising [Recovered/Resolved]
  - Lymphadenopathy [Unknown]
  - Infusion site erythema [Recovered/Resolved]
  - Infusion site swelling [Recovered/Resolved]
  - Infusion site pain [Unknown]
  - Fatigue [Unknown]
  - Headache [Unknown]

NARRATIVE: CASE EVENT DATE: 20231112
